FAERS Safety Report 7302957-8 (Version None)
Quarter: 2011Q1

REPORT INFORMATION
  Report Type: 
  Country: None (occurrence: None)
  Receive Date: 20110220
  Receipt Date: 20110208
  Transmission Date: 20110831
  Serious: Yes (Hospitalization, Other)
  Sender: FDA-Public Use
  Company Number: JP-BAYER-2011-011084

PATIENT
  Age: 57 Year
  Sex: Male

DRUGS (2)
  1. ASPIRIN [Suspect]
     Route: 048
  2. ASPENON [Suspect]
     Indication: ANGINA PECTORIS
     Route: 048

REACTIONS (9)
  - SMALL INTESTINAL HAEMORRHAGE [None]
  - INTESTINAL HAEMATOMA [None]
  - BLOOD UREA INCREASED [None]
  - LOSS OF CONSCIOUSNESS [None]
  - HAEMOGLOBIN DECREASED [None]
  - MELAENA [None]
  - DIVERTICULUM INTESTINAL [None]
  - HAEMATOCHEZIA [None]
  - FAECAL INCONTINENCE [None]
